FAERS Safety Report 5807147-3 (Version None)
Quarter: 2008Q3

REPORT INFORMATION
  Report Type: 
  Country: None (occurrence: None)
  Receive Date: 20080709
  Receipt Date: 20080709
  Transmission Date: 20090109
  Serious: Yes (Other)
  Sender: FDA-Public Use
  Company Number: None

PATIENT
  Age: 54 Year
  Sex: Female
  Weight: 58.9676 kg

DRUGS (1)
  1. RECLAST [Suspect]
     Indication: OSTEOPENIA
     Dosage: ONCE A YEAR  IV
     Route: 042
     Dates: start: 20080630, end: 20080630

REACTIONS (8)
  - ANOREXIA [None]
  - ASTHENIA [None]
  - FATIGUE [None]
  - FEAR [None]
  - INFLUENZA LIKE ILLNESS [None]
  - NAUSEA [None]
  - PYREXIA [None]
  - VOMITING [None]
